FAERS Safety Report 21556493 (Version 1)
Quarter: 2022Q4

REPORT INFORMATION
  Report Type: Spontaneous
  Country: CN (occurrence: None)
  Receive Date: 20221104
  Receipt Date: 20221104
  Transmission Date: 20230112
  Serious: Yes (Death)
  Sender: FDA-Public Use
  Company Number: 2022A364337

PATIENT
  Age: 52 Year
  Sex: Male
  Weight: 66 kg

DRUGS (1)
  1. IMFINZI [Suspect]
     Active Substance: DURVALUMAB
     Indication: Small cell lung cancer extensive stage
     Dosage: 1500 MG/PERIOD
     Route: 065
     Dates: start: 20220427, end: 20220428

REACTIONS (1)
  - Death [Fatal]
